FAERS Safety Report 4381695-8 (Version None)
Quarter: 2004Q2

REPORT INFORMATION
  Report Type: 
  Country: None (occurrence: None)
  Receive Date: 20040615
  Receipt Date: 20040603
  Transmission Date: 20050107
  Serious: Yes (Other)
  Sender: FDA-Public Use
  Company Number: 2004217445GB

PATIENT
  Sex: Male

DRUGS (1)
  1. CAVERJECT(ALPROSADIL)POWDER, STERILE,  5-40UG/ML [Suspect]
     Dosage: PRN, INT CORP CAVERN

REACTIONS (1)
  - MYOCARDIAL INFARCTION [None]
